FAERS Safety Report 25625793 (Version 1)
Quarter: 2025Q3

REPORT INFORMATION
  Report Type: Spontaneous
  Country: JP (occurrence: JP)
  Receive Date: 20250731
  Receipt Date: 20250731
  Transmission Date: 20251021
  Serious: Yes (Death, Other)
  Sender: CSL BEHRING
  Company Number: JP-BEH-2025214332

PATIENT

DRUGS (1)
  1. VELPHORO [Suspect]
     Active Substance: SUCROFERRIC OXYHYDROXIDE
     Indication: Product used for unknown indication
     Route: 048

REACTIONS (12)
  - Death [Fatal]
  - Hyperphosphataemia [Unknown]
  - Hypophosphataemia [Unknown]
  - Iron overload [Unknown]
  - Iron deficiency [Unknown]
  - Haemoglobin increased [Unknown]
  - Diarrhoea [Unknown]
  - Nausea [Unknown]
  - Drug eruption [Unknown]
  - Breath odour [Unknown]
  - Product physical issue [Unknown]
  - Taste disorder [Unknown]
